FAERS Safety Report 8826762 (Version 3)
Quarter: 2012Q4

REPORT INFORMATION
  Report Type: Report from Study
  Country: JP (occurrence: JP)
  Receive Date: 20121005
  Receipt Date: 20121217
  Transmission Date: 20130627
  Serious: Yes (Death, Hospitalization)
  Sender: FDA-Public Use
  Company Number: JP-GLAXOSMITHKLINE-B0828852A

PATIENT
  Age: 32 Year
  Sex: Female

DRUGS (5)
  1. REVOLADE [Suspect]
     Indication: AUTOIMMUNE THROMBOCYTOPENIA
     Dosage: 12.5MG Per day
     Route: 048
     Dates: start: 201011
  2. PREDNISOLONE [Concomitant]
     Indication: AUTOIMMUNE THROMBOCYTOPENIA
     Dosage: 10MG Per day
     Route: 048
     Dates: start: 200808
  3. FERROMIA [Concomitant]
     Indication: IRON DEFICIENCY ANAEMIA
     Dosage: 50MG Per day
     Route: 048
  4. PL [Concomitant]
     Route: 048
     Dates: start: 201208
  5. CRAVIT [Concomitant]
     Indication: URINARY TRACT INFECTION
     Dosage: 500MG Per day
     Route: 048
     Dates: start: 201208

REACTIONS (2)
  - Hepatic function abnormal [Not Recovered/Not Resolved]
  - Lymphoma [Fatal]
